FAERS Safety Report 22031723 (Version 1)
Quarter: 2023Q1

REPORT INFORMATION
  Report Type: Spontaneous
  Country: FR (occurrence: FR)
  Receive Date: 20230224
  Receipt Date: 20230224
  Transmission Date: 20230417
  Serious: Yes (Other)
  Sender: FDA-Public Use
  Company Number: None

PATIENT
  Age: 75 Year
  Sex: Female
  Weight: 102 kg

DRUGS (2)
  1. ATORVASTATIN [Interacting]
     Active Substance: ATORVASTATIN
     Indication: Hypercholesterolaemia
     Dates: end: 20230104
  2. DAPTOMYCIN [Suspect]
     Active Substance: DAPTOMYCIN
     Indication: Device related infection
     Dates: start: 20221229, end: 20230105

REACTIONS (2)
  - Rhabdomyolysis [Recovered/Resolved]
  - Drug interaction [Unknown]

NARRATIVE: CASE EVENT DATE: 20230106
